FAERS Safety Report 8292314-2 (Version None)
Quarter: 2012Q2

REPORT INFORMATION
  Report Type: 
  Country: None (occurrence: None)
  Receive Date: 20120417
  Receipt Date: 20120406
  Transmission Date: 20120825
  Serious: Yes (Hospitalization)
  Sender: FDA-Public Use
  Company Number: US-PERRIGO-12US002985

PATIENT
  Age: 33 Year
  Sex: Male
  Weight: 102.95 kg

DRUGS (3)
  1. TRENBOLONE [Suspect]
     Indication: MUSCLE BUILDING THERAPY
     Dosage: 2 ML, EVERY 4 DAYS
     Route: 030
  2. TESTOSTERONE [Suspect]
     Indication: MUSCLE BUILDING THERAPY
     Dosage: 150 MG, WEEKLY
     Route: 030
  3. TESTOSTERONE PHENYL PROPIONATE INJ [Suspect]
     Indication: MUSCLE BUILDING THERAPY
     Dosage: 750 MG, WEEKLY
     Route: 030

REACTIONS (1)
  - DIABETES MELLITUS [None]
